FAERS Safety Report 9196455 (Version 3)
Quarter: 2014Q2

REPORT INFORMATION
  Report Type: Spontaneous
  Country: IN (occurrence: IN)
  Receive Date: 20130328
  Receipt Date: 20140408
  Transmission Date: 20141212
  Serious: Yes (Hospitalization, Other)
  Sender: FDA-Public Use
  Company Number: IN-COVIDIEN/TYCO HEALTHCARE/MALLINCKRODT-T201301412

PATIENT
  Age: 68 Year
  Sex: Female
  Weight: 70 kg

DRUGS (1)
  1. OPTIRAY [Suspect]
     Indication: COMPUTERISED TOMOGRAM HEAD
     Dosage: 20 ML, SINGLE
     Route: 042
     Dates: start: 20130320, end: 20130320

REACTIONS (8)
  - Hypovolaemic shock [Recovered/Resolved]
  - Electrolyte imbalance [Recovered/Resolved]
  - Cardiac arrest [Recovered/Resolved]
  - Convulsion [Recovered/Resolved]
  - Vertigo [Recovered/Resolved]
  - Loss of consciousness [Recovered/Resolved]
  - Dyspnoea [Recovered/Resolved]
  - Confusional state [Recovered/Resolved]
